FAERS Safety Report 7633831 (Version 2)
Quarter: 2013Q1

REPORT INFORMATION
  Report Type: Spontaneous
  Country: US (occurrence: None)
  Receive Date: 20100826
  Receipt Date: 20130124
  Transmission Date: 20140127
  Serious: Yes (Hospitalization, Other)
  Sender: FDA-Public Use
  Company Number: 20100811CINRY1580

PATIENT
  Age: 31 Year
  Sex: Female

DRUGS (2)
  1. CINRYZE [Suspect]
     Indication: HEREDITARY ANGIOEDEMA
     Dates: start: 200903
  2. CINRYZE [Suspect]
     Indication: PROPHYLAXIS
     Dates: start: 200903

REACTIONS (3)
  - Deep vein thrombosis [None]
  - International normalised ratio decreased [None]
  - Pulmonary embolism [None]
